FAERS Safety Report 8340143-3 (Version None)
Quarter: 2012Q2

REPORT INFORMATION
  Report Type: 
  Country: None (occurrence: None)
  Receive Date: 20120507
  Receipt Date: 20120501
  Transmission Date: 20120825
  Serious: Yes (Other)
  Sender: FDA-Public Use
  Company Number: US-BAYER-2012-005426

PATIENT
  Age: 33 Year
  Sex: Female
  Weight: 95 kg

DRUGS (14)
  1. PREDNISONE [Concomitant]
  2. CEPHALEXIN [Concomitant]
  3. EFFEXOR [Concomitant]
  4. YAZ [Suspect]
     Dosage: UNK
     Dates: start: 20050101
  5. INDOMETHACIN [Concomitant]
  6. HYDROCODONE BITARTRATE AND ACETAMINOPHEN [Concomitant]
  7. SYNTHROID [Concomitant]
  8. TYLENOL (CAPLET) [Concomitant]
  9. FLUOXETINE [Concomitant]
  10. ZITHROMAX [Concomitant]
  11. ALPRAZOLAM [Concomitant]
  12. BENZONATATE [Concomitant]
  13. TERAZOL 1 [Concomitant]
  14. LEVOTHYROXINE SODIUM [Concomitant]

REACTIONS (3)
  - PAIN [None]
  - DEEP VEIN THROMBOSIS [None]
  - PULMONARY EMBOLISM [None]
